FAERS Safety Report 9202020 (Version 1)
Quarter: 2013Q1

REPORT INFORMATION
  Report Type: Spontaneous
  Country: US (occurrence: None)
  Receive Date: 20130328
  Receipt Date: 20130328
  Transmission Date: 20140127
  Serious: Yes (Other)
  Sender: FDA-Public Use
  Company Number: 2012-2039

PATIENT
  Age: 61 Year
  Sex: Female

DRUGS (21)
  1. SOMATULINE DEPOT [Suspect]
     Indication: ACROMEGALY
     Dosage: (120 MG, 1 IN 28 D), SUBCUTANEOUS
     Route: 058
     Dates: start: 20111221
  2. METFORMIN HYDROCHLORIDE (METFORMIN HYDROCHLORIDE) [Concomitant]
  3. JANUVIA (ANTI-DIABETICS) [Concomitant]
  4. PREVACID (LANSOPRAZOLE) [Concomitant]
  5. CRESTOR (ROSUVASTATIN) [Concomitant]
  6. DITROPAN (OXYBUTYNIN) [Concomitant]
  7. LEXAPRO (ESCITALOPRAM OXALATE) [Concomitant]
  8. CORGARD (NADOLOL) [Concomitant]
  9. TOPAMAX (TOPIRAMATE) [Concomitant]
  10. RELPAX (ELETRIPTAN HYDROBROMIDE) [Concomitant]
  11. ALLEGRA (FEXOFENADINE) [Concomitant]
  12. CENTRUM (CENTRUM/00554501/) [Concomitant]
  13. CALCIUM WITH VITAMIN D (CALCIUM WITH VITAMIN D) [Concomitant]
  14. FISH OIL (FISH OIL) [Concomitant]
  15. FIORICET (AXOTAL) [Concomitant]
  16. SYNTHROID (LEVOTHYROXINE SODIUM) [Concomitant]
  17. CALCITRIOL (CALCITRIOL) [Concomitant]
  18. METANX (VITAMIN B) [Concomitant]
  19. VICODIN (VICODIN) [Concomitant]
  20. EVOXAC (CEVIMELINE HYDROCHLORIDE) [Concomitant]
  21. CABERGOLINE (CABERGOLINE) [Concomitant]

REACTIONS (3)
  - Abdominal distension [None]
  - Hypoglycaemia [None]
  - Radiotherapy [None]
